FAERS Safety Report 6195154-3 (Version None)
Quarter: 2009Q2

REPORT INFORMATION
  Report Type: 
  Country: None (occurrence: None)
  Receive Date: 20090519
  Receipt Date: 20090507
  Transmission Date: 20091009
  Serious: Yes (Death, Other)
  Sender: FDA-Public Use
  Company Number: JP-PFIZER INC-2009211356

PATIENT
  Age: 62 Year

DRUGS (3)
  1. EPIRUBICIN HCL [Suspect]
     Indication: BREAST CANCER
     Dosage: 90/M2 ON DAY 1 EVERY 3 WEEKS
  2. CYCLOPHOSPHAMIDE [Concomitant]
     Indication: BREAST CANCER
     Dosage: 100 MG/DAY FOR 14 DAYS
  3. LETROZOLE [Concomitant]
     Dosage: 5 MG/DAY
     Route: 048

REACTIONS (4)
  - ACUTE HEPATIC FAILURE [None]
  - CARDIAC DISORDER [None]
  - CARDIOMYOPATHY [None]
  - RENAL FAILURE ACUTE [None]
